FAERS Safety Report 17425788 (Version 4)
Quarter: 2020Q2

REPORT INFORMATION
  Report Type: Spontaneous
  Country: US (occurrence: US)
  Receive Date: 20200218
  Receipt Date: 20200629
  Transmission Date: 20200713
  Serious: No
  Sender: FDA-Public Use
  Company Number: US-009507513-2002USA005829

PATIENT
  Age: 70 Year
  Sex: Female

DRUGS (5)
  1. DULERA [Suspect]
     Active Substance: FORMOTEROL FUMARATE DIHYDRATE\MOMETASONE FUROATE
     Indication: NASAL DISORDER
     Dosage: 1 INHALATION/TWICE DAILY
     Route: 055
  2. DULERA [Suspect]
     Active Substance: FORMOTEROL FUMARATE DIHYDRATE\MOMETASONE FUROATE
     Indication: BRONCHIAL HYPERREACTIVITY
     Dosage: 1 PUFFS, TWICE A DAY
     Route: 055
     Dates: start: 20191209
  3. DULERA [Suspect]
     Active Substance: FORMOTEROL FUMARATE DIHYDRATE\MOMETASONE FUROATE
     Dosage: 1 PUFF, BID
  4. TOPIRAMATE. [Concomitant]
     Active Substance: TOPIRAMATE
  5. ESTRIOL [Concomitant]
     Active Substance: ESTRIOL

REACTIONS (14)
  - Therapeutic response unexpected [Unknown]
  - Incorrect dose administered [Unknown]
  - Incorrect dose administered [Unknown]
  - Product quality issue [Unknown]
  - Product use in unapproved indication [Unknown]
  - Malaise [Not Recovered/Not Resolved]
  - Product quality issue [Unknown]
  - Poor quality device used [Unknown]
  - Headache [Unknown]
  - Poor quality device used [Unknown]
  - Incorrect dose administered [Unknown]
  - Product quality issue [Unknown]
  - Hypersomnia [Not Recovered/Not Resolved]
  - Poor quality device used [Unknown]

NARRATIVE: CASE EVENT DATE: 20191209
